FAERS Safety Report 26071793 (Version 1)
Quarter: 2025Q4

REPORT INFORMATION
  Report Type: Report from Study
  Country: TN (occurrence: None)
  Receive Date: 20251120
  Receipt Date: 20251120
  Transmission Date: 20260119
  Serious: Yes (Other)
  Sender: UCB
  Company Number: TN-UCBSA-2025072395

PATIENT

DRUGS (1)
  1. CERTOLIZUMAB PEGOL [Suspect]
     Active Substance: CERTOLIZUMAB PEGOL
     Indication: Rheumatoid arthritis
     Dosage: UNK

REACTIONS (6)
  - Hepatic cytolysis [Unknown]
  - Neutropenia [Unknown]
  - Infection [Unknown]
  - Skin reaction [Unknown]
  - Hypersensitivity [Unknown]
  - Drug ineffective [Unknown]
